FAERS Safety Report 5250096-2 (Version None)
Quarter: 2007Q1

REPORT INFORMATION
  Report Type: 
  Country: None (occurrence: None)
  Receive Date: 20070228
  Receipt Date: 20060202
  Transmission Date: 20070707
  Serious: No
  Sender: FDA-Public Use
  Company Number: US-GLAXOSMITHKLINE-A0592366A

PATIENT
  Sex: Male

DRUGS (6)
  1. LAMOTRIGINE [Suspect]
     Indication: EPILEPSY
     Dosage: 100MG PER DAY
     Dates: start: 20050117
  2. LAMOTRIGINE [Suspect]
     Dosage: 200MG PER DAY
     Dates: start: 20050503, end: 20050531
  3. LAMOTRIGINE [Suspect]
     Dosage: 300MG PER DAY
     Dates: start: 20050531
  4. LAMOTRIGINE [Suspect]
     Dosage: 400MG PER DAY
     Dates: start: 20050923, end: 20051003
  5. DILANTIN [Concomitant]
     Dates: start: 20050921
  6. VITAMIN K [Concomitant]
     Dosage: 10MCG PER DAY

REACTIONS (2)
  - CARDIAC MURMUR [None]
  - DRUG EXPOSURE DURING PREGNANCY [None]
